FAERS Safety Report 9015792 (Version 1)
Quarter: 2013Q1

REPORT INFORMATION
  Report Type: Report from Study
  Country: FR (occurrence: FR)
  Receive Date: 20130116
  Receipt Date: 20130116
  Transmission Date: 20140127
  Serious: Yes (Other)
  Sender: FDA-Public Use
  Company Number: FR-ROCHE-1179470

PATIENT
  Age: 64 Year
  Sex: Male
  Weight: 73 kg

DRUGS (2)
  1. BEVACIZUMAB [Suspect]
     Indication: METASTATIC RENAL CELL CARCINOMA
     Route: 065
     Dates: start: 20080901, end: 20080901
  2. TEMSIROLIMUS [Suspect]
     Indication: METASTATIC RENAL CELL CARCINOMA
     Route: 065
     Dates: start: 20080901, end: 20080910

REACTIONS (3)
  - Renal failure [Recovered/Resolved]
  - Hypotension [Recovered/Resolved]
  - Hypoxia [Recovered/Resolved]
